FAERS Safety Report 12647713 (Version 1)
Quarter: 2016Q3

REPORT INFORMATION
  Report Type: Spontaneous
  Country: US (occurrence: None)
  Receive Date: 20160811
  Receipt Date: 20160811
  Transmission Date: 20161109
  Serious: No
  Sender: FDA-Public Use
  Company Number: None

PATIENT
  Age: 55 Year
  Sex: Male

DRUGS (1)
  1. ZEPATIER [Suspect]
     Active Substance: ELBASVIR\GRAZOPREVIR
     Indication: CHRONIC HEPATITIS C

REACTIONS (6)
  - Nausea [None]
  - Dizziness [None]
  - Headache [None]
  - Gastric disorder [None]
  - Vomiting [None]
  - Feeling abnormal [None]

NARRATIVE: CASE EVENT DATE: 20160716
